FAERS Safety Report 5823209-9 (Version None)
Quarter: 2008Q3

REPORT INFORMATION
  Report Type: 
  Country: None (occurrence: None)
  Receive Date: 20080725
  Receipt Date: 20080722
  Transmission Date: 20090109
  Serious: Yes (Death, Other)
  Sender: FDA-Public Use
  Company Number: PHHY2008GB14262

PATIENT
  Age: 26 Year
  Sex: Female
  Weight: 68 kg

DRUGS (6)
  1. TEGRETOL [Suspect]
     Indication: EPILEPSY
     Dosage: 200 MG, BID
     Route: 048
     Dates: start: 20030101
  2. INFLUENZA VIRUS [Suspect]
     Dosage: 1 ML
     Route: 030
     Dates: start: 20071220
  3. EPILIM [Suspect]
     Indication: EPILEPSY
     Dosage: 200 MG, BID
     Dates: start: 20030708
  4. AMOXIL ^AYERST LAB^ [Concomitant]
     Indication: URINARY TRACT INFECTION
     Dosage: 250 MG, TID
     Dates: start: 20071229
  5. NITROFURANTOIN [Concomitant]
     Dosage: 50 MG, QD
     Dates: start: 19980527
  6. ANTIBIOTICS [Concomitant]

REACTIONS (2)
  - DRUG INTERACTION [None]
  - DRUG TOXICITY [None]
